FAERS Safety Report 5775170-3 (Version None)
Quarter: 2008Q2

REPORT INFORMATION
  Report Type: 
  Country: None (occurrence: None)
  Receive Date: 20080616
  Receipt Date: 20080616
  Transmission Date: 20081010
  Serious: No
  Sender: FDA-Public Use
  Company Number: None

PATIENT
  Age: 23 Year
  Sex: Male
  Weight: 70.3075 kg

DRUGS (1)
  1. PROPECIA [Suspect]
     Indication: ALOPECIA
     Dosage: 1MG TABLET DAILY PO
     Route: 048
     Dates: start: 20040101, end: 20070601

REACTIONS (4)
  - ANHEDONIA [None]
  - LOSS OF LIBIDO [None]
  - PENIS DISORDER [None]
  - SENSORY LOSS [None]
